FAERS Safety Report 4644686-5 (Version None)
Quarter: 2005Q2

REPORT INFORMATION
  Report Type: 
  Country: None (occurrence: None)
  Receive Date: 20050425
  Receipt Date: 20050425
  Transmission Date: 20051028
  Serious: No
  Sender: FDA-Public Use
  Company Number: None

PATIENT
  Age: 54 Year
  Sex: Male
  Weight: 80.2867 kg

DRUGS (1)
  1. ZOCOR [Suspect]
     Dosage: 40MG   DAILY   ORAL
     Route: 048
     Dates: start: 19960601, end: 20040821

REACTIONS (5)
  - ARTHRALGIA [None]
  - INSOMNIA [None]
  - MYALGIA [None]
  - PAIN IN EXTREMITY [None]
  - RASH [None]
